FAERS Safety Report 10191366 (Version 1)
Quarter: 2014Q2

REPORT INFORMATION
  Report Type: Spontaneous
  Country: GB (occurrence: None)
  Receive Date: 20140521
  Receipt Date: 20140521
  Transmission Date: 20141212
  Serious: Yes (Death, Hospitalization, Disabling)
  Sender: FDA-Public Use
  Company Number: GB-DEXPHARM-20140250

PATIENT
  Sex: Female

DRUGS (1)
  1. CHLORHEXIDINE [Suspect]
     Indication: VASCULAR CATHETERISATION
     Route: 061

REACTIONS (1)
  - Chemical injury [None]
